FAERS Safety Report 6447861-2 (Version None)
Quarter: 2009Q4

REPORT INFORMATION
  Report Type: 
  Country: None (occurrence: None)
  Receive Date: 20091120
  Receipt Date: 20091113
  Transmission Date: 20100525
  Serious: Yes (Hospitalization)
  Sender: FDA-Public Use
  Company Number: US-JNJFOC-20090804099

PATIENT
  Sex: Female
  Weight: 108 kg

DRUGS (7)
  1. FLEXERIL [Suspect]
  2. FLEXERIL [Suspect]
     Indication: MUSCLE SPASMS
     Dosage: 10 MG 3-4 TIMES/DAILY
  3. REBIF [Suspect]
     Indication: MULTIPLE SCLEROSIS
     Route: 058
  4. YAZ [Suspect]
     Indication: CONTRACEPTION
     Route: 048
  5. ANTIBIOTIC UNSPECIFIED [Suspect]
     Indication: URINARY TRACT INFECTION
  6. FISH OIL [Concomitant]
  7. NORCO [Concomitant]
     Indication: PAIN
     Dosage: 10/325 1-2 EVERY 4 HOURS AS NEEDED

REACTIONS (5)
  - ANTEPARTUM HAEMORRHAGE [None]
  - CONVULSION [None]
  - DRUG EXPOSURE DURING PREGNANCY [None]
  - PULMONARY EMBOLISM [None]
  - RETAINED PLACENTA OR MEMBRANES [None]
